FAERS Safety Report 17420352 (Version 1)
Quarter: 2020Q1

REPORT INFORMATION
  Report Type: Spontaneous
  Country: US (occurrence: US)
  Receive Date: 20200214
  Receipt Date: 20200214
  Transmission Date: 20200409
  Serious: No
  Sender: FDA-Public Use
  Company Number: US-VERTEX PHARMACEUTICALS-2020-002659

PATIENT
  Age: 57 Year
  Sex: Female

DRUGS (1)
  1. TRIKAFTA [Suspect]
     Active Substance: ELEXACAFTOR\IVACAFTOR\TEZACAFTOR
     Indication: CYSTIC FIBROSIS
     Dosage: 2 TABS OF 100MG ELEXACAFTOR/50MG TEZACAFTOR/75MG IVACAFTOR IN AM AND 1 TAB OF 150MG IVACAFTOR IN PM
     Route: 048
     Dates: start: 20200114

REACTIONS (3)
  - Diarrhoea [Unknown]
  - Pruritus [Unknown]
  - Rash [Unknown]

NARRATIVE: CASE EVENT DATE: 20200120
